FAERS Safety Report 16032514 (Version 1)
Quarter: 2019Q1

REPORT INFORMATION
  Report Type: Spontaneous
  Country: US (occurrence: US)
  Receive Date: 20190304
  Receipt Date: 20190304
  Transmission Date: 20190418
  Serious: No
  Sender: FDA-Public Use
  Company Number: US-GLAXOSMITHKLINE-US2019034271

PATIENT
  Sex: Female

DRUGS (1)
  1. VENTOLIN HFA [Suspect]
     Active Substance: ALBUTEROL SULFATE
     Indication: COUGH
     Dosage: UNK, 6D
     Route: 055
     Dates: start: 201902

REACTIONS (3)
  - Wrong technique in device usage process [Unknown]
  - Underdose [Unknown]
  - Wrong technique in product usage process [Unknown]
